FAERS Safety Report 17581411 (Version 1)
Quarter: 2020Q1

REPORT INFORMATION
  Report Type: Report from Study
  Country: GB (occurrence: GB)
  Receive Date: 20200325
  Receipt Date: 20200325
  Transmission Date: 20200409
  Serious: Yes (Death)
  Sender: FDA-Public Use
  Company Number: GB-JNJFOC-20200329794

PATIENT
  Sex: Female
  Weight: 98 kg

DRUGS (13)
  1. OMEPRAZOLE. [Concomitant]
     Active Substance: OMEPRAZOLE
     Dates: start: 20070715
  2. SIMVASTATIN. [Concomitant]
     Active Substance: SIMVASTATIN
     Dates: start: 20140715
  3. CEFALEXIN [Concomitant]
     Active Substance: CEPHALEXIN
     Dates: start: 20140715
  4. USTEKINUMAB [Suspect]
     Active Substance: USTEKINUMAB
     Route: 058
     Dates: start: 20141215, end: 20170710
  5. FERROUS SULFATE. [Concomitant]
     Active Substance: FERROUS SULFATE
     Dates: start: 20090715
  6. CEPHALEXIN                         /00145501/ [Concomitant]
     Active Substance: CEPHALEXIN
     Dates: start: 20140929
  7. USTEKINUMAB [Suspect]
     Active Substance: USTEKINUMAB
     Indication: PSORIASIS
     Route: 058
     Dates: start: 20171113, end: 20190723
  8. FUROSEMIDE. [Concomitant]
     Active Substance: FUROSEMIDE
     Dates: start: 20121116
  9. PARACETAMOL [Concomitant]
     Active Substance: ACETAMINOPHEN
     Dates: start: 20071030
  10. WARFARIN [Concomitant]
     Active Substance: WARFARIN
     Dates: start: 20081115
  11. ATENOLOL. [Concomitant]
     Active Substance: ATENOLOL
     Dates: start: 20140715
  12. ALLOPURINOL. [Concomitant]
     Active Substance: ALLOPURINOL
     Dates: start: 20170901
  13. IBUPROFEN. [Concomitant]
     Active Substance: IBUPROFEN
     Dates: start: 20160620

REACTIONS (1)
  - Pneumonia [Fatal]

NARRATIVE: CASE EVENT DATE: 201912
